FAERS Safety Report 17358191 (Version 3)
Quarter: 2020Q2

REPORT INFORMATION
  Report Type: Spontaneous
  Country: CO (occurrence: CO)
  Receive Date: 20200131
  Receipt Date: 20200617
  Transmission Date: 20200713
  Serious: Yes (Other)
  Sender: FDA-Public Use
  Company Number: CO-BIOMARINAP-CO-2020-128200

PATIENT
  Age: 18 Year
  Weight: 27 kg

DRUGS (1)
  1. VIMIZIM [Suspect]
     Active Substance: ELOSULFASE ALFA
     Indication: MUCOPOLYSACCHARIDOSIS IV
     Dosage: UNK
     Route: 042
     Dates: start: 20140602, end: 20160214

REACTIONS (3)
  - Astigmatism [Unknown]
  - Corneal opacity [Unknown]
  - Deafness unilateral [Unknown]
